FAERS Safety Report 15731664 (Version 2)
Quarter: 2019Q1

REPORT INFORMATION
  Report Type: Spontaneous
  Country: IT (occurrence: IT)
  Receive Date: 20181217
  Receipt Date: 20190114
  Transmission Date: 20190417
  Serious: Yes (Life-Threatening, Hospitalization, Other)
  Sender: FDA-Public Use
  Company Number: PHHY2018IT185599

PATIENT
  Age: 73 Year
  Sex: Female

DRUGS (1)
  1. HYDROCHLOROTHIAZIDE, RAMIPRIL [Suspect]
     Active Substance: HYDROCHLOROTHIAZIDE\RAMIPRIL
     Indication: HYPERTENSION
     Route: 048

REACTIONS (11)
  - Idiosyncratic drug reaction [Recovering/Resolving]
  - Respiratory acidosis [Recovering/Resolving]
  - Hypotension [Recovering/Resolving]
  - Leukopenia [Recovering/Resolving]
  - Metabolic acidosis [Recovering/Resolving]
  - Acute pulmonary oedema [Recovering/Resolving]
  - Haemoconcentration [Recovering/Resolving]
  - Vomiting [Recovering/Resolving]
  - Acute respiratory failure [Recovering/Resolving]
  - Pyrexia [Recovering/Resolving]
  - Diarrhoea [Recovering/Resolving]

NARRATIVE: CASE EVENT DATE: 201706
